FAERS Safety Report 26138424 (Version 1)
Quarter: 2025Q4

REPORT INFORMATION
  Report Type: Report from Study
  Country: EU (occurrence: EU)
  Receive Date: 20251210
  Receipt Date: 20251210
  Transmission Date: 20260117
  Serious: Yes (Other)
  Sender: CELLTRION
  Company Number: EU-ROCHE-10000145348

PATIENT

DRUGS (14)
  1. BEVACIZUMAB [Suspect]
     Active Substance: BEVACIZUMAB
     Indication: Hepatocellular carcinoma
     Dosage: 870 MG
     Route: 065
     Dates: start: 20220901
  2. ATEZOLIZUMAB [Suspect]
     Active Substance: ATEZOLIZUMAB
     Indication: Hepatocellular carcinoma
     Dosage: 1200 MG
     Route: 042
     Dates: start: 20220901
  3. METAMIZOL [Concomitant]
     Active Substance: METAMIZOLE SODIUM
     Dosage: EVERY 1 DAY
     Dates: start: 202507, end: 20250919
  4. LANTUS [Concomitant]
     Active Substance: INSULIN GLARGINE
     Dosage: EVERY 1 DAY
  5. OMEPRAZOLE [Concomitant]
     Active Substance: OMEPRAZOLE
     Dosage: EVERY 1 DAY
     Dates: start: 2012
  6. ATORVASTATIN CALCIUM [Concomitant]
     Active Substance: ATORVASTATIN CALCIUM
     Dosage: EVERY 1 DAY
     Dates: start: 2012
  7. EXFORGE [Concomitant]
     Active Substance: AMLODIPINE BESYLATE\VALSARTAN
     Dosage: EVERY 1 DAY
     Dates: start: 2020
  8. HERBALS\SAW PALMETTO [Concomitant]
     Active Substance: HERBALS\SAW PALMETTO
     Dosage: EVERY 0.5 DAY
     Dates: start: 2012
  9. DIAZEPAM [Concomitant]
     Active Substance: DIAZEPAM
     Indication: Neoplasm malignant
     Dosage: EVERY 1 DAY
     Dates: start: 202110
  10. METHIMAZOLE [Concomitant]
     Active Substance: METHIMAZOLE
     Dosage: EVERY 1 DAY
     Dates: start: 20221110
  11. CEFDITOREN [Concomitant]
     Active Substance: CEFDITOREN
     Dosage: EVERY 0.5 DAY
     Dates: start: 20240902, end: 20240906
  12. AMOXICILLIN [Concomitant]
     Active Substance: AMOXICILLIN
     Dosage: EVERY 0.33 DAY
     Dates: start: 20240910, end: 20240916
  13. CLAVULANIC ACID [Concomitant]
     Active Substance: CLAVULANIC ACID
     Dosage: EVERY 0.33 DAY
     Dates: start: 20240910, end: 20240916
  14. NOVORAPID [Concomitant]
     Active Substance: INSULIN ASPART
     Dosage: EVERY 1 DAY

REACTIONS (6)
  - Thrombocytopenia [Recovering/Resolving]
  - Rectal haemorrhage [Recovered/Resolved]
  - Asthenia [Recovered/Resolved]
  - Back pain [Recovered/Resolved]
  - Myalgia [Recovered/Resolved]
  - Intentional product use issue [Unknown]

NARRATIVE: CASE EVENT DATE: 20240906
